FAERS Safety Report 5959393-6 (Version None)
Quarter: 2008Q4

REPORT INFORMATION
  Report Type: 
  Country: None (occurrence: None)
  Receive Date: 20081120
  Receipt Date: 20080731
  Transmission Date: 20090506
  Serious: No
  Sender: FDA-Public Use
  Company Number: A0740510A

PATIENT
  Age: 25 Year
  Sex: Female

DRUGS (4)
  1. VERAMYST [Suspect]
     Indication: MULTIPLE ALLERGIES
     Dosage: 2SPR PER DAY
     Route: 045
     Dates: start: 20080501, end: 20080701
  2. PAXIL [Concomitant]
  3. UNKNOWN MEDICATION [Concomitant]
  4. AMBIEN [Concomitant]

REACTIONS (2)
  - HEADACHE [None]
  - NASAL ULCER [None]
